FAERS Safety Report 6557120-5 (Version None)
Quarter: 2010Q1

REPORT INFORMATION
  Report Type: 
  Country: None (occurrence: None)
  Receive Date: 20100126
  Receipt Date: 20100111
  Transmission Date: 20100710
  Serious: Yes (Death)
  Sender: FDA-Public Use
  Company Number: 004701

PATIENT
  Age: 42 Year
  Sex: Female

DRUGS (5)
  1. ACETAMINOPHEN AND HYDROCODONE BITARTRATE [Suspect]
  2. CYCLOBENZAPRINE [Suspect]
  3. MEPERIDINE HCL [Suspect]
  4. CARISOPROL [Suspect]
  5. HYDROMORPHONE HYDROCHLORIDE [Suspect]

REACTIONS (1)
  - COMPLETED SUICIDE [None]
